FAERS Safety Report 19625772 (Version 1)
Quarter: 2021Q3

REPORT INFORMATION
  Report Type: Spontaneous
  Country: US (occurrence: US)
  Receive Date: 20210728
  Receipt Date: 20210728
  Transmission Date: 20211014
  Serious: Yes (Death)
  Sender: FDA-Public Use
  Company Number: None

PATIENT
  Age: 61 Year
  Sex: Female
  Weight: 94.5 kg

DRUGS (8)
  1. OXYCODONE HCL 30 MG MALLINCKRODT [Suspect]
     Active Substance: OXYCODONE HYDROCHLORIDE
     Indication: ROTATOR CUFF SYNDROME
     Dosage: ?          QUANTITY:1 TABLET(S);?
     Route: 048
  2. PREGABALIN 200MG [Concomitant]
     Active Substance: PREGABALIN
  3. OXYCODONE HCL 30 MG MALLINCKRODT [Suspect]
     Active Substance: OXYCODONE HYDROCHLORIDE
     Indication: SPONDYLITIS
     Dosage: ?          QUANTITY:1 TABLET(S);?
     Route: 048
  4. CYCLOBENZAPRINE. [Concomitant]
     Active Substance: CYCLOBENZAPRINE
  5. OXYCODONE HCL 30 MG MALLINCKRODT [Suspect]
     Active Substance: OXYCODONE HYDROCHLORIDE
     Indication: PAIN MANAGEMENT
     Dosage: ?          QUANTITY:1 TABLET(S);?
     Route: 048
  6. FUROSEMIDE 20MG [Concomitant]
     Active Substance: FUROSEMIDE
  7. TOPIRAMATE 50 MG [Concomitant]
     Active Substance: TOPIRAMATE
  8. OXYCODONE 30 MG [Concomitant]
     Active Substance: OXYCODONE

REACTIONS (4)
  - Toxicity to various agents [None]
  - Manufacturing materials issue [None]
  - Product substitution issue [None]
  - Product formulation issue [None]

NARRATIVE: CASE EVENT DATE: 20210214
